FAERS Safety Report 9426306 (Version 5)
Quarter: 2013Q4

REPORT INFORMATION
  Report Type: Spontaneous
  Country: AT (occurrence: AT)
  Receive Date: 20130730
  Receipt Date: 20131112
  Transmission Date: 20140711
  Serious: Yes (Hospitalization, Other)
  Sender: FDA-Public Use
  Company Number: AT-BRISTOL-MYERS SQUIBB COMPANY-19146430

PATIENT
  Age: 65 Year
  Sex: Male
  Weight: 174 kg

DRUGS (3)
  1. METFORMIN HCL [Suspect]
     Indication: DIABETES MELLITUS
     Dosage: ^2 X 1000^
     Route: 048
  2. TAMSULOSIN [Suspect]
     Indication: BENIGN PROSTATIC HYPERPLASIA
     Dosage: 1X0.4
     Route: 048
  3. THROMBO ASS [Suspect]
     Indication: CORONARY ARTERY DISEASE
     Dosage: 1 DF = 1X100
     Route: 048

REACTIONS (1)
  - Acute coronary syndrome [Recovered/Resolved]
